FAERS Safety Report 7247519-6 (Version None)
Quarter: 2011Q1

REPORT INFORMATION
  Report Type: 
  Country: None (occurrence: None)
  Receive Date: 20110127
  Receipt Date: 20110114
  Transmission Date: 20110831
  Serious: Yes (Other)
  Sender: FDA-Public Use
  Company Number: US-ROCHE-754036

PATIENT
  Sex: Male

DRUGS (4)
  1. OXALIPLATIN [Suspect]
     Dosage: 5 CYCLES
     Route: 065
  2. HERCEPTIN [Suspect]
     Dosage: 5 CYCLES
     Route: 065
  3. FLUOROURACIL [Suspect]
     Dosage: 5 CYCLES
     Route: 065
  4. FOLINIC ACID [Suspect]
     Dosage: 5 CYCLES
     Route: 065

REACTIONS (3)
  - RETINAL HAEMORRHAGE [None]
  - PAPILLOEDEMA [None]
  - EYE HAEMORRHAGE [None]
